FAERS Safety Report 4527226-0 (Version None)
Quarter: 2004Q4

REPORT INFORMATION
  Report Type: 
  Country: None (occurrence: None)
  Receive Date: 20041215
  Receipt Date: 20041125
  Transmission Date: 20050328
  Serious: Yes (Other)
  Sender: FDA-Public Use
  Company Number: PHBS2004JP15901

PATIENT
  Age: 1 Year
  Sex: Male

DRUGS (11)
  1. CYCLOPHOSPHAMIDE [Suspect]
     Indication: CORD BLOOD TRANSPLANT THERAPY
     Dosage: UNK, UNK
     Route: 065
  2. VP-16 [Suspect]
     Indication: CORD BLOOD TRANSPLANT THERAPY
     Dosage: 60 MG/KG/D
     Route: 065
  3. METHOTREXATE [Suspect]
     Indication: CORD BLOOD TRANSPLANT THERAPY
     Route: 065
  4. IRRADIATION [Suspect]
  5. PREDNISOLONE [Suspect]
     Route: 065
  6. VINCRISTINE [Suspect]
  7. DOXORUBICIN HCL [Suspect]
  8. L-ASPARAGINASE [Suspect]
  9. ARA-C [Suspect]
  10. CYCLOSPORINE [Suspect]
     Indication: CORD BLOOD TRANSPLANT THERAPY
     Route: 065
  11. STEROIDS NOS [Suspect]
     Dosage: 2 MG/KG/D

REACTIONS (6)
  - ENGRAFTMENT SYNDROME [None]
  - HISTIOCYTOSIS HAEMATOPHAGIC [None]
  - PROCEDURAL COMPLICATION [None]
  - PYREXIA [None]
  - RASH GENERALISED [None]
  - WEIGHT INCREASED [None]
